FAERS Safety Report 17665108 (Version 1)
Quarter: 2020Q2

REPORT INFORMATION
  Report Type: Spontaneous
  Country: US (occurrence: US)
  Receive Date: 20200414
  Receipt Date: 20200414
  Transmission Date: 20200713
  Serious: Yes (Other)
  Sender: FDA-Public Use
  Company Number: US-PFIZER INC-2020067483

PATIENT
  Age: 65 Year
  Sex: Female
  Weight: 71.21 kg

DRUGS (1)
  1. PREMARIN [Suspect]
     Active Substance: ESTROGENS, CONJUGATED
     Indication: HORMONE REPLACEMENT THERAPY
     Dosage: 0.312 MG, DAILY (0.625MG, CUTS IN HALF)
     Route: 048

REACTIONS (1)
  - Hypergammaglobulinaemia benign monoclonal [Unknown]
